FAERS Safety Report 4741286-3 (Version None)
Quarter: 2005Q3

REPORT INFORMATION
  Report Type: 
  Country: None (occurrence: None)
  Receive Date: 20050810
  Receipt Date: 20041228
  Transmission Date: 20060218
  Serious: No
  Sender: FDA-Public Use
  Company Number: US-GLAXOSMITHKLINE-A0538553A

PATIENT
  Age: 54 Year
  Sex: Male

DRUGS (9)
  1. PAXIL [Suspect]
     Indication: DEPRESSION
     Dosage: 40MG PER DAY
     Route: 048
     Dates: end: 20041227
  2. WELLBUTRIN [Suspect]
     Indication: DEPRESSION
     Dosage: 150MG PER DAY
     Route: 048
     Dates: start: 20041227
  3. KLONOPIN [Concomitant]
  4. TOPAMAX [Concomitant]
  5. AMITRIPTYLINE [Concomitant]
  6. ASPIRIN [Concomitant]
  7. VERAPAMIL [Concomitant]
  8. VITAMIN B-12 [Concomitant]
     Route: 062
  9. DEPAKOTE [Concomitant]

REACTIONS (3)
  - ABNORMAL DREAMS [None]
  - DRUG INEFFECTIVE [None]
  - DRY MOUTH [None]
